FAERS Safety Report 11103486 (Version 1)
Quarter: 2015Q2

REPORT INFORMATION
  Report Type: Spontaneous
  Country: AU (occurrence: AU)
  Receive Date: 20150511
  Receipt Date: 20150511
  Transmission Date: 20150821
  Serious: Yes (Hospitalization, Other)
  Sender: FDA-Public Use
  Company Number: AU-GLAXOSMITHKLINE-AU2015GSK062240

PATIENT
  Age: 57 Year
  Sex: Male

DRUGS (1)
  1. SALBUTAMOL [Suspect]
     Active Substance: ALBUTEROL
     Indication: ASTHMA

REACTIONS (15)
  - Respiratory acidosis [Recovering/Resolving]
  - Ischaemia [Recovering/Resolving]
  - Electrocardiogram ST segment elevation [Recovering/Resolving]
  - Troponin increased [Recovering/Resolving]
  - Blood creatine phosphokinase increased [Recovering/Resolving]
  - Cardiac arrest [Recovering/Resolving]
  - Ulcer [Recovering/Resolving]
  - Circulatory collapse [Recovering/Resolving]
  - Hyperhidrosis [Recovering/Resolving]
  - Pulseless electrical activity [Recovering/Resolving]
  - Atrial fibrillation [Recovering/Resolving]
  - Ventricular tachycardia [Recovering/Resolving]
  - Pulmonary hypertension [Recovering/Resolving]
  - Cardiac output decreased [Recovering/Resolving]
  - Depressed level of consciousness [Recovering/Resolving]
